FAERS Safety Report 19889739 (Version 1)
Quarter: 2021Q3

REPORT INFORMATION
  Report Type: Spontaneous
  Country: VE (occurrence: VE)
  Receive Date: 20210928
  Receipt Date: 20210928
  Transmission Date: 20211014
  Serious: Yes (Other)
  Sender: FDA-Public Use
  Company Number: NVSC2020VE034748

PATIENT
  Sex: Female

DRUGS (2)
  1. GLIVEC [Suspect]
     Active Substance: IMATINIB MESYLATE
     Indication: CHRONIC MYELOID LEUKAEMIA
     Dosage: 400 MG (4 X 1000 MG)
     Route: 065
  2. GLIVEC [Suspect]
     Active Substance: IMATINIB MESYLATE
     Dosage: 400 MG (4 X 1000 MG) (APPROX 15 DAYS AGO)
     Route: 065

REACTIONS (9)
  - Headache [Unknown]
  - Ear discomfort [Unknown]
  - Diarrhoea haemorrhagic [Unknown]
  - Oropharyngeal pain [Unknown]
  - Pyrexia [Unknown]
  - COVID-19 [Unknown]
  - Malaise [Unknown]
  - Escherichia urinary tract infection [Unknown]
  - Nervousness [Unknown]
